FAERS Safety Report 12504475 (Version 9)
Quarter: 2017Q2

REPORT INFORMATION
  Report Type: Report from Study
  Country: CA (occurrence: CA)
  Receive Date: 20160628
  Receipt Date: 20170407
  Transmission Date: 20170830
  Serious: Yes (Death, Hospitalization, Other)
  Sender: FDA-Public Use
  Company Number: PHHY2016CA087362

PATIENT
  Age: 65 Year
  Sex: Male

DRUGS (4)
  1. AFINITOR [Suspect]
     Active Substance: EVEROLIMUS
     Indication: PANCREATIC NEUROENDOCRINE TUMOUR
     Dosage: 10 MG, QD
     Route: 048
     Dates: start: 2016, end: 201603
  2. SANDOSTATIN [Suspect]
     Active Substance: OCTREOTIDE ACETATE
     Indication: METASTASES TO LIVER
     Dosage: UNK, TID ON AND OFF
     Route: 058
     Dates: start: 2006, end: 2010
  3. SANDOSTATIN LAR DEPOT [Suspect]
     Active Substance: OCTREOTIDE ACETATE
     Indication: METASTASES TO LIVER
     Dosage: 30 MG, QMO (ONCE A MONTH)
     Route: 030
     Dates: start: 20120910, end: 20170328
  4. FLORINEF ACETATE [Concomitant]
     Active Substance: FLUDROCORTISONE ACETATE
     Indication: PRODUCT USED FOR UNKNOWN INDICATION
     Dosage: 0.5 DF, QD
     Route: 065
     Dates: start: 201611

REACTIONS (21)
  - Urinary tract infection [Unknown]
  - Urinary tract stoma complication [Unknown]
  - Abdominal pain [Unknown]
  - Discomfort [Unknown]
  - Vomiting [Unknown]
  - Intestinal obstruction [Unknown]
  - Faecal vomiting [Unknown]
  - Musculoskeletal discomfort [Unknown]
  - Blood creatinine increased [Unknown]
  - Bacterial test positive [Unknown]
  - Death [Fatal]
  - Blood pressure decreased [Unknown]
  - Blood pressure systolic increased [Unknown]
  - Renal failure [Unknown]
  - Musculoskeletal stiffness [Unknown]
  - Insomnia [Unknown]
  - Chills [Unknown]
  - Viral upper respiratory tract infection [Unknown]
  - Loss of consciousness [Unknown]
  - Pyrexia [Unknown]
  - Heart rate decreased [Unknown]

NARRATIVE: CASE EVENT DATE: 20160818
